FAERS Safety Report 15768087 (Version 1)
Quarter: 2018Q4

REPORT INFORMATION
  Report Type: Report from Study
  Country: HR (occurrence: HR)
  Receive Date: 20181227
  Receipt Date: 20181227
  Transmission Date: 20190205
  Serious: Yes (Other)
  Sender: FDA-Public Use
  Company Number: HR-TEVA-2018-HR-859118

PATIENT
  Age: 5 Year
  Sex: Female
  Weight: 18 kg

DRUGS (5)
  1. DOXORUBICIN [Suspect]
     Active Substance: DOXORUBICIN
     Indication: EWING^S SARCOMA
     Dosage: 14.8 MILLIGRAM DAILY; LAST DOSE PRIOR TO SAE: 17-APR-2017
     Route: 042
     Dates: start: 20170415, end: 20170417
  2. ETOPOSIDE. [Suspect]
     Active Substance: ETOPOSIDE
     Indication: EWING^S SARCOMA
     Dosage: 111 MILLIGRAM DAILY; LAST DOSE PRIOR TO SAE: 17-APR-2017
     Route: 042
     Dates: start: 20170415, end: 20170417
  3. LONQUEX [Suspect]
     Active Substance: LIPEGFILGRASTIM
     Indication: COLONY STIMULATING FACTOR THERAPY
     Dosage: FU PHASE
     Route: 058
  4. NEUPOGEN [Suspect]
     Active Substance: FILGRASTIM
     Indication: COLONY STIMULATING FACTOR THERAPY
     Dosage: 85 MICROGRAM DAILY; LAST DOSE PRIOR TO SAE: 07-APR-2017; FU PHASE
     Route: 058
     Dates: start: 20170128
  5. IFOSFAMIDE. [Suspect]
     Active Substance: IFOSFAMIDE
     Indication: EWING^S SARCOMA
     Dosage: 2200 MILLIGRAM DAILY; LAST DOSE PRIOR TO SAE: 17-APR-2017
     Route: 042
     Dates: start: 20170415, end: 20170417

REACTIONS (1)
  - Febrile neutropenia [Recovered/Resolved]

NARRATIVE: CASE EVENT DATE: 20170423
